FAERS Safety Report 18921652 (Version 2)
Quarter: 2021Q1

REPORT INFORMATION
  Report Type: Spontaneous
  Country: US (occurrence: US)
  Receive Date: 20210222
  Receipt Date: 20210312
  Transmission Date: 20210420
  Serious: Yes (Other)
  Sender: FDA-Public Use
  Company Number: US-GLAXOSMITHKLINE-US2021GSK049060

PATIENT
  Sex: Female

DRUGS (12)
  1. ZANTAC [Suspect]
     Active Substance: RANITIDINE HYDROCHLORIDE
     Indication: DYSPEPSIA
     Dosage: 150 MG SOMETIMES DAILY ? SOMETIMES OCCASIONAL
     Route: 065
     Dates: start: 199009, end: 202002
  2. RANITIDINE. [Suspect]
     Active Substance: RANITIDINE
     Indication: GASTROOESOPHAGEAL REFLUX DISEASE
     Dosage: 75 OTC
     Route: 065
     Dates: start: 199009, end: 202002
  3. RANITIDINE. [Suspect]
     Active Substance: RANITIDINE
     Indication: DYSPEPSIA
     Dosage: 150 MG SOMETIMES DAILY ? SOMETIMES OCCASIONAL
     Route: 065
     Dates: start: 199009, end: 202002
  4. ZANTAC [Suspect]
     Active Substance: RANITIDINE HYDROCHLORIDE
     Indication: GASTROOESOPHAGEAL REFLUX DISEASE
     Dosage: 75 OTC
     Route: 065
     Dates: start: 199009, end: 202002
  5. ZANTAC [Suspect]
     Active Substance: RANITIDINE HYDROCHLORIDE
     Indication: DYSPEPSIA
     Dosage: 150 MG SOMETIMES DAILY ? SOMETIMES OCCASIONAL
     Route: 065
     Dates: start: 199009, end: 202002
  6. RANITIDINE. [Suspect]
     Active Substance: RANITIDINE
     Indication: DYSPEPSIA
     Dosage: 150 MG SOMETIMES DAILY ? SOMETIMES OCCASIONAL
     Route: 065
     Dates: start: 199009, end: 202002
  7. RANITIDINE. [Suspect]
     Active Substance: RANITIDINE
     Indication: GASTROOESOPHAGEAL REFLUX DISEASE
     Dosage: 75 OTC
     Route: 065
     Dates: start: 199009, end: 202002
  8. RANITIDINE. [Suspect]
     Active Substance: RANITIDINE
     Indication: GASTROOESOPHAGEAL REFLUX DISEASE
     Dosage: 75 OTC
     Route: 065
     Dates: start: 199009, end: 202002
  9. RANITIDINE CAPSULE [Suspect]
     Active Substance: RANITIDINE
     Indication: DYSPEPSIA
     Dosage: 150 MG SOMETIMES DAILY ? SOMETIMES OCCASIONAL
     Route: 065
     Dates: start: 199009, end: 202002
  10. ZANTAC [Suspect]
     Active Substance: RANITIDINE HYDROCHLORIDE
     Indication: GASTROOESOPHAGEAL REFLUX DISEASE
     Dosage: 75 OTC
     Route: 065
     Dates: start: 199009, end: 202002
  11. RANITIDINE. [Suspect]
     Active Substance: RANITIDINE
     Indication: DYSPEPSIA
     Dosage: 150 MG SOMETIMES DAILY ? SOMETIMES OCCASIONAL
     Route: 065
     Dates: start: 199009, end: 202002
  12. RANITIDINE CAPSULE [Suspect]
     Active Substance: RANITIDINE
     Indication: GASTROOESOPHAGEAL REFLUX DISEASE
     Dosage: 75 OTC
     Route: 065
     Dates: start: 199009, end: 202002

REACTIONS (2)
  - Bladder cancer [Unknown]
  - Breast cancer [Unknown]
